FAERS Safety Report 8769244 (Version 2)
Quarter: 2012Q4

REPORT INFORMATION
  Report Type: 
  Country: US (occurrence: US)
  Receive Date: 20120904
  Receipt Date: 20120928
  Transmission Date: 20130627
  Serious: Yes (Other)
  Sender: FDA-Public Use
  Company Number: US-PFIZER INC-2012215262

PATIENT
  Age: 63 Year
  Sex: Female
  Weight: 58.05 kg

DRUGS (7)
  1. LYRICA [Suspect]
     Indication: FIBROMYALGIA
     Dosage: UNK, daily
  2. LYRICA [Suspect]
     Dosage: UNK
     Dates: start: 2012
  3. CODEINE [Suspect]
     Dosage: UNK
  4. VICODIN [Suspect]
     Indication: PAIN
     Dosage: (500mg four tablets in morning and two tablets in afternoon)
     Dates: end: 20120829
  5. HYDROCODONE [Suspect]
     Dosage: UNK
     Route: 048
  6. ABILIFY [Concomitant]
     Indication: DEPRESSION
     Dosage: 2 mg, daily
  7. OMEPRAZOLE [Concomitant]
     Indication: GASTRIC ULCER
     Dosage: 20 mg, daily

REACTIONS (7)
  - Weight increased [Unknown]
  - Drug ineffective [Unknown]
  - Feeling abnormal [Unknown]
  - Drug resistance [Unknown]
  - Weight decreased [Unknown]
  - Hunger [Unknown]
  - Drug hypersensitivity [Unknown]
